FAERS Safety Report 18538948 (Version 1)
Quarter: 2020Q4

REPORT INFORMATION
  Report Type: Spontaneous
  Country: US (occurrence: US)
  Receive Date: 20201123
  Receipt Date: 20201123
  Transmission Date: 20210114
  Serious: Yes (Life-Threatening)
  Sender: FDA-Public Use
  Company Number: None

PATIENT
  Age: 77 Year
  Sex: Female
  Weight: 113.4 kg

DRUGS (3)
  1. ENOXAPARIN 30MG Q12H [Concomitant]
     Dates: start: 20201119, end: 20201121
  2. REMDESIVIR. [Suspect]
     Active Substance: REMDESIVIR
     Indication: COVID-19
     Route: 042
     Dates: start: 20201116, end: 20201120
  3. ENOXAPARIN 110MG BID [Concomitant]
     Dates: start: 20201115, end: 20201119

REACTIONS (3)
  - Aspartate aminotransferase increased [None]
  - Alanine aminotransferase increased [None]
  - International normalised ratio increased [None]

NARRATIVE: CASE EVENT DATE: 20201119
